FAERS Safety Report 6667409-7 (Version None)
Quarter: 2010Q2

REPORT INFORMATION
  Report Type: 
  Country: None (occurrence: None)
  Receive Date: 20100405
  Receipt Date: 20100401
  Transmission Date: 20101027
  Serious: Yes (Death, Other)
  Sender: FDA-Public Use
  Company Number: PHHY2010GB01041

PATIENT
  Sex: Male

DRUGS (6)
  1. GLEEVEC [Suspect]
     Indication: GASTROINTESTINAL STROMAL TUMOUR
     Dosage: 400 MG, UNK
     Dates: start: 20090814
  2. GLEEVEC [Suspect]
     Dosage: 300 MG, UNK
     Dates: start: 20090918
  3. MST [Concomitant]
     Indication: PAIN
     Dosage: UNK
     Dates: start: 20090701
  4. ORAMORPH SR [Concomitant]
     Indication: PAIN
     Dosage: 5 MG, UNK
     Dates: start: 20090701
  5. SENNA [Concomitant]
     Indication: CONSTIPATION
     Dosage: 10 MG, UNK
     Dates: start: 20090701
  6. MAGNESIUM HYDROXIDE TAB [Concomitant]
     Indication: CONSTIPATION
     Dosage: 10 ML, UNK
     Dates: start: 20090701

REACTIONS (5)
  - DEATH [None]
  - GASTROINTESTINAL STROMAL TUMOUR [None]
  - GENERAL PHYSICAL HEALTH DETERIORATION [None]
  - MALIGNANT NEOPLASM PROGRESSION [None]
  - NEUTROPENIA [None]
